FAERS Safety Report 20576286 (Version 1)
Quarter: 2022Q1

REPORT INFORMATION
  Report Type: Spontaneous
  Country: FR (occurrence: FR)
  Receive Date: 20220310
  Receipt Date: 20220310
  Transmission Date: 20220423
  Serious: Yes (Other)
  Sender: FDA-Public Use
  Company Number: FR-SUN PHARMACEUTICAL INDUSTRIES LTD-2022R1-329270

PATIENT

DRUGS (3)
  1. VENLAFAXINE [Suspect]
     Active Substance: VENLAFAXINE HYDROCHLORIDE
     Indication: Antidepressant therapy
     Dosage: UNK
     Route: 064
  2. CLOMIPRAMINE [Suspect]
     Active Substance: CLOMIPRAMINE
     Indication: Antidepressant therapy
     Dosage: UNK
     Route: 064
  3. IMIPRAMINE [Suspect]
     Active Substance: IMIPRAMINE
     Indication: Antidepressant therapy
     Dosage: UNK
     Route: 064

REACTIONS (2)
  - Hypotonia neonatal [Unknown]
  - Foetal exposure during pregnancy [Unknown]
